FAERS Safety Report 20044321 (Version 3)
Quarter: 2022Q1

REPORT INFORMATION
  Report Type: Spontaneous
  Country: IT (occurrence: IT)
  Receive Date: 20211108
  Receipt Date: 20220112
  Transmission Date: 20220423
  Serious: Yes (Hospitalization, Other)
  Sender: FDA-Public Use
  Company Number: IT-CELGENE-ITA-20211007849

PATIENT
  Age: 71 Year
  Sex: Female

DRUGS (13)
  1. VENETOCLAX [Suspect]
     Active Substance: VENETOCLAX
     Indication: Acute myeloid leukaemia
     Route: 048
     Dates: start: 20210802
  2. AZACITIDINE [Suspect]
     Active Substance: AZACITIDINE
     Indication: Acute myeloid leukaemia
     Route: 041
     Dates: start: 20210802
  3. PEVONEDISTAT [Suspect]
     Active Substance: PEVONEDISTAT
     Indication: Acute myeloid leukaemia
     Route: 048
     Dates: start: 20210802
  4. HYDROCHLOROTHIAZIDE\NEBIVOLOL HYDROCHLORIDE [Concomitant]
     Active Substance: HYDROCHLOROTHIAZIDE\NEBIVOLOL HYDROCHLORIDE
     Indication: Hypertension
     Route: 048
     Dates: start: 2000
  5. ZOFENOPRIL [Concomitant]
     Active Substance: ZOFENOPRIL
     Indication: Hypertension
     Route: 065
     Dates: start: 2000
  6. MAGNESIUM [Concomitant]
     Active Substance: MAGNESIUM
     Indication: Hypomagnesaemia
     Route: 065
     Dates: start: 20210903
  7. POTASSIUM CHLORIDE [Concomitant]
     Active Substance: POTASSIUM CHLORIDE
     Indication: Hypokalaemia
     Route: 048
     Dates: start: 20210903, end: 20211019
  8. ALLOPURINOL [Concomitant]
     Active Substance: ALLOPURINOL
     Indication: Prophylaxis
     Route: 065
     Dates: start: 20210802
  9. BINOSTO [Concomitant]
     Active Substance: ALENDRONATE SODIUM
     Indication: Osteoporosis
     Route: 065
     Dates: start: 2018
  10. ASPIRIN [Concomitant]
     Active Substance: ASPIRIN
     Indication: Cardiovascular event prophylaxis
     Route: 048
     Dates: start: 20210823, end: 20210926
  11. LEVOFLOXACIN [Concomitant]
     Active Substance: LEVOFLOXACIN
     Indication: Infection prophylaxis
     Route: 065
     Dates: start: 20210802, end: 20211011
  12. POSACONAZOLE [Concomitant]
     Active Substance: POSACONAZOLE
     Indication: Infection prophylaxis
     Route: 065
     Dates: start: 20210402, end: 20211019
  13. FLECAINIDE [Concomitant]
     Active Substance: FLECAINIDE
     Indication: Prophylaxis
     Route: 065
     Dates: start: 2016

REACTIONS (1)
  - Cardiac failure acute [Not Recovered/Not Resolved]

NARRATIVE: CASE EVENT DATE: 20211019
